FAERS Safety Report 7853425-6 (Version None)
Quarter: 2011Q4

REPORT INFORMATION
  Report Type: 
  Country: None (occurrence: None)
  Receive Date: 20111026
  Receipt Date: 20111017
  Transmission Date: 20120403
  Serious: Yes (Hospitalization)
  Sender: FDA-Public Use
  Company Number: JP-MPIJNJ-2010-04237

PATIENT

DRUGS (17)
  1. VELCADE [Suspect]
     Indication: MULTIPLE MYELOMA
     Dosage: 1 MG/M2, UNK
     Route: 042
     Dates: start: 20100611, end: 20100622
  2. CANDESARTAN CILEXETIL [Concomitant]
     Indication: HYPERTENSION
     Dosage: 8 MG, UNK
     Route: 048
  3. CRESTOR [Concomitant]
     Indication: HYPERLIPIDAEMIA
     Dosage: 2.5 MG, UNK
     Route: 048
  4. ONEALFA [Concomitant]
     Indication: OSTEOPOROSIS
     Dosage: 1 UG, UNK
     Route: 048
  5. METHYCOBAL                         /00324901/ [Concomitant]
     Indication: NEUROPATHY PERIPHERAL
     Dosage: 1500 UG, UNK
     Route: 048
  6. ZYLORIC                            /00003301/ [Concomitant]
     Indication: HYPERURICAEMIA
     Dosage: 200 MG, UNK
     Route: 048
     Dates: start: 20100611, end: 20100811
  7. BISOLVON                           /00004702/ [Concomitant]
     Indication: BRONCHITIS CHRONIC
     Dosage: 12 MG, UNK
     Route: 048
     Dates: end: 20100807
  8. LENDORMIN [Concomitant]
     Indication: INSOMNIA
     Dosage: 0.25 MG, UNK
     Route: 048
  9. VELCADE [Suspect]
     Dosage: 0.7 MG, UNK
     Route: 042
     Dates: start: 20100702, end: 20100713
  10. URINORM [Concomitant]
     Indication: HYPERURICAEMIA
     Dosage: 50 MG, UNK
     Route: 048
     Dates: end: 20100811
  11. DECADRON [Concomitant]
     Dosage: 0.5 MG, UNK
     Route: 048
     Dates: start: 20100702, end: 20100715
  12. LANSOPRAZOLE [Concomitant]
     Dosage: 15 MG, UNK
     Route: 048
  13. SODIUM BICARBONATE [Concomitant]
     Dosage: 2 G, UNK
     Route: 048
     Dates: end: 20100807
  14. DECADRON [Concomitant]
     Indication: MULTIPLE MYELOMA
     Dosage: 1 MG, UNK
     Route: 048
     Dates: start: 20100611, end: 20100701
  15. ANPLAG [Concomitant]
     Indication: ARTERIOSCLEROSIS OBLITERANS
     Dosage: 200 MG, UNK
     Route: 048
     Dates: end: 20100807
  16. NORVASC [Concomitant]
     Indication: HYPERTENSION
     Dosage: 5 MG, UNK
     Route: 048
  17. JUVELA N [Concomitant]
     Indication: NEUROPATHY PERIPHERAL
     Dosage: 600 MG, UNK
     Route: 048

REACTIONS (3)
  - UVEITIS [None]
  - HEPATIC FUNCTION ABNORMAL [None]
  - PLATELET COUNT DECREASED [None]
